FAERS Safety Report 21751311 (Version 1)
Quarter: 2022Q4

REPORT INFORMATION
  Report Type: Spontaneous
  Country: FR (occurrence: FR)
  Receive Date: 20221220
  Receipt Date: 20221220
  Transmission Date: 20230113
  Serious: Yes (Hospitalization, Other)
  Sender: FDA-Public Use
  Company Number: FR-AFSSAPS-RS20222216

PATIENT
  Age: 82 Year
  Sex: Male
  Weight: 64 kg

DRUGS (3)
  1. CIPROFLOXACIN [Suspect]
     Active Substance: CIPROFLOXACIN
     Indication: Otitis externa
     Dosage: 500 MILLIGRAM
     Route: 048
     Dates: start: 20221018, end: 20221105
  2. OXYCODONE [Suspect]
     Active Substance: OXYCODONE
     Indication: Pain
     Dosage: MORNING AND NIGHT
     Route: 048
     Dates: start: 20221018, end: 20221105
  3. CEFTAZIDIME [Suspect]
     Active Substance: CEFTAZIDIME
     Indication: Otitis externa
     Dosage: UNK
     Route: 040
     Dates: start: 20221018, end: 20221105

REACTIONS (1)
  - Cholestasis [Recovering/Resolving]

NARRATIVE: CASE EVENT DATE: 20221022
